FAERS Safety Report 11239538 (Version 12)
Quarter: 2016Q2

REPORT INFORMATION
  Report Type: Spontaneous
  Country: US (occurrence: US)
  Receive Date: 20150706
  Receipt Date: 20160527
  Transmission Date: 20160815
  Serious: Yes (Other)
  Sender: FDA-Public Use
  Company Number: US-PFIZER INC-2015217103

PATIENT
  Age: 56 Year
  Sex: Female
  Weight: 107 kg

DRUGS (15)
  1. SUTENT [Suspect]
     Active Substance: SUNITINIB MALATE
     Indication: METASTATIC RENAL CELL CARCINOMA
     Dosage: 50 MG, CYCLIC (28 DAYS ON/14 DAYS OFF)
     Dates: start: 20150530
  2. FLUTICASONE PROPIONATE. [Concomitant]
     Active Substance: FLUTICASONE PROPIONATE
     Dosage: UNK
  3. XANAX [Concomitant]
     Active Substance: ALPRAZOLAM
     Dosage: UNK
  4. BENICAR [Concomitant]
     Active Substance: OLMESARTAN MEDOXOMIL
     Dosage: UNK
  5. METHYLPREDNISOLONE. [Concomitant]
     Active Substance: METHYLPREDNISOLONE
     Dosage: UNK
  6. AYR [Concomitant]
     Dosage: UNK
  7. DEXILANT [Concomitant]
     Active Substance: DEXLANSOPRAZOLE
     Dosage: UNK
  8. LIPITOR [Concomitant]
     Active Substance: ATORVASTATIN CALCIUM
     Dosage: UNK
  9. ALBUTEROL SULFATE. [Concomitant]
     Active Substance: ALBUTEROL SULFATE
     Dosage: UNK
  10. DOCUSATE SODIUM. [Concomitant]
     Active Substance: DOCUSATE SODIUM
     Dosage: UNK
  11. FISH OIL [Concomitant]
     Active Substance: FISH OIL
     Dosage: UNK
  12. LORATADINE. [Concomitant]
     Active Substance: LORATADINE
     Dosage: UNK
  13. VITAMIN C [Concomitant]
     Active Substance: ASCORBIC ACID
     Dosage: UNK
  14. CRANBERRY. [Concomitant]
     Active Substance: CRANBERRY
     Dosage: UNK
  15. VITAMIN D3 [Concomitant]
     Active Substance: CHOLECALCIFEROL
     Dosage: UNK

REACTIONS (67)
  - Hypotension [Unknown]
  - Diarrhoea [Not Recovered/Not Resolved]
  - Glossodynia [Unknown]
  - Gingival bleeding [Unknown]
  - White blood cell count abnormal [Recovering/Resolving]
  - Gastrointestinal disorder [Unknown]
  - Pain in extremity [Unknown]
  - Dry skin [Not Recovered/Not Resolved]
  - Gastrooesophageal reflux disease [Not Recovered/Not Resolved]
  - Dizziness [Unknown]
  - Dry eye [Unknown]
  - Nasal dryness [Unknown]
  - Platelet count decreased [Recovering/Resolving]
  - Chromaturia [Unknown]
  - Cough [Not Recovered/Not Resolved]
  - Abdominal pain upper [Unknown]
  - Fluid retention [Unknown]
  - Abdominal discomfort [Unknown]
  - Hypertension [Unknown]
  - Eructation [Unknown]
  - Flatulence [Unknown]
  - Palmar-plantar erythrodysaesthesia syndrome [Unknown]
  - Stress [Unknown]
  - Hypersensitivity [Unknown]
  - Stomatitis [Unknown]
  - Urinary tract infection [Unknown]
  - Dyspnoea [Unknown]
  - Poor quality sleep [Unknown]
  - Hair colour changes [Unknown]
  - Back pain [Unknown]
  - Nausea [Unknown]
  - Rash [Not Recovered/Not Resolved]
  - Epistaxis [Recovered/Resolved]
  - Dyspepsia [Unknown]
  - Blood calcium abnormal [Unknown]
  - Acne [Unknown]
  - Insomnia [Unknown]
  - White blood cell count decreased [Not Recovered/Not Resolved]
  - Blood glucose increased [Unknown]
  - Emotional disorder [Unknown]
  - Weight increased [Unknown]
  - Constipation [Not Recovered/Not Resolved]
  - Decreased appetite [Unknown]
  - Weight decreased [Recovering/Resolving]
  - Dysuria [Unknown]
  - Mood altered [Unknown]
  - Dysphonia [Unknown]
  - Blood calcium increased [Recovering/Resolving]
  - Joint swelling [Unknown]
  - Pruritus [Unknown]
  - Dry mouth [Not Recovered/Not Resolved]
  - Depression [Unknown]
  - Oral discomfort [Unknown]
  - Alopecia [Unknown]
  - Eye swelling [Unknown]
  - Myocardial infarction [Unknown]
  - Chest injury [Unknown]
  - Thrombosis [Unknown]
  - Gingival pain [Unknown]
  - Skin disorder [Not Recovered/Not Resolved]
  - Fatigue [Recovering/Resolving]
  - Oral pain [Unknown]
  - Visual impairment [Unknown]
  - Depressed mood [Unknown]
  - Hair disorder [Unknown]
  - Peripheral swelling [Unknown]
  - Abdominal distension [Unknown]
